FAERS Safety Report 9556964 (Version 1)
Quarter: 2013Q3

REPORT INFORMATION
  Report Type: Spontaneous
  Country: AU (occurrence: None)
  Receive Date: 20130924
  Receipt Date: 20130924
  Transmission Date: 20140515
  Serious: Yes (Hospitalization)
  Sender: FDA-Public Use
  Company Number: SYM-2013-10763

PATIENT
  Sex: 0

DRUGS (5)
  1. FLUOROURACIL (FLUOROURACIL) (FLUOROURACIL) [Suspect]
     Indication: DUCTAL ADENOCARCINOMA OF PANCREAS
  2. IRINOTECAN (IRINOTECAN) (IRINOTECAN) [Suspect]
     Indication: DUCTAL ADENOCARCINOMA OF PANCREAS
  3. OXALIPLATIN (OXALIPLATIN) (OXALIPLATIN) [Suspect]
     Indication: DUCTAL ADENOCARCINOMA OF PANCREAS
  4. LEUCOVORIN (FOLINIC ACID) (FOLINIC ACID) [Suspect]
     Indication: DUCTAL ADENOCARCINOMA OF PANCREAS
  5. PEGFILGRASTIM (PEGFILGRASTIM) (PEGFILGRASTIM) [Concomitant]

REACTIONS (1)
  - Diarrhoea [None]
